FAERS Safety Report 23922661 (Version 1)
Quarter: 2024Q2

REPORT INFORMATION
  Report Type: Spontaneous
  Country: JP (occurrence: JP)
  Receive Date: 20240531
  Receipt Date: 20240531
  Transmission Date: 20240716
  Serious: Yes (Other)
  Sender: FDA-Public Use
  Company Number: JP-TEVA-VS-3203093

PATIENT

DRUGS (1)
  1. ESTAZOLAM [Suspect]
     Active Substance: ESTAZOLAM
     Indication: Product used for unknown indication
     Dosage: ABOUT EIGHT TABLETS
     Route: 048

REACTIONS (3)
  - Loss of consciousness [Recovered/Resolved]
  - Road traffic accident [Recovered/Resolved]
  - Overdose [Unknown]
